FAERS Safety Report 8168402-8 (Version None)
Quarter: 2012Q1

REPORT INFORMATION
  Report Type: 
  Country: None (occurrence: None)
  Receive Date: 20120227
  Receipt Date: 20120221
  Transmission Date: 20120608
  Serious: Yes (Disabling)
  Sender: FDA-Public Use
  Company Number: US-MERCK-1202USA03352

PATIENT
  Sex: Male

DRUGS (2)
  1. AZASITE [Suspect]
     Route: 047
     Dates: start: 20120111, end: 20120113
  2. RESTASIS [Concomitant]
     Route: 065

REACTIONS (4)
  - OCULAR DISCOMFORT [None]
  - EYE IRRITATION [None]
  - INAPPROPRIATE SCHEDULE OF DRUG ADMINISTRATION [None]
  - EYE PAIN [None]
